FAERS Safety Report 6969423-0 (Version None)
Quarter: 2010Q3

REPORT INFORMATION
  Report Type: 
  Country: None (occurrence: None)
  Receive Date: 20100902
  Receipt Date: 20100816
  Transmission Date: 20110219
  Serious: Yes (Hospitalization)
  Sender: FDA-Public Use
  Company Number: SE-2010-1824

PATIENT
  Age: 69 Year
  Sex: Female

DRUGS (3)
  1. NAVELBINE [Suspect]
     Indication: PRODUCT USED FOR UNKNOWN INDICATION
     Dates: start: 20100101
  2. CARBOPLATIN [Concomitant]
  3. INNOHEP [Concomitant]

REACTIONS (5)
  - ATELECTASIS [None]
  - HYPOTENSION [None]
  - PAIN IN EXTREMITY [None]
  - PULMONARY EMBOLISM [None]
  - RESPIRATORY DISORDER [None]
